FAERS Safety Report 23979324 (Version 1)
Quarter: 2024Q2

REPORT INFORMATION
  Report Type: Spontaneous
  Country: CA (occurrence: CA)
  Receive Date: 20240615
  Receipt Date: 20240615
  Transmission Date: 20240716
  Serious: Yes (Death, Hospitalization)
  Sender: FDA-Public Use
  Company Number: None

PATIENT
  Age: 94 Year
  Sex: Male
  Weight: 86 kg

DRUGS (11)
  1. APIXABAN [Suspect]
     Active Substance: APIXABAN
     Indication: Atrial fibrillation
     Dosage: 2 EVERY 1 DAYS
     Route: 048
  2. BICALUTAMIDE [Concomitant]
     Active Substance: BICALUTAMIDE
  3. CARDIZEM [Concomitant]
     Active Substance: DILTIAZEM HYDROCHLORIDE
     Dosage: CAPSULE, EXTENDED RELEASE
  4. CYANOCOBALAMIN [Concomitant]
     Active Substance: CYANOCOBALAMIN
  5. FOSAVANCE [Concomitant]
     Active Substance: ALENDRONATE SODIUM\CHOLECALCIFEROL
  6. HYDROMORPHONE [Concomitant]
     Active Substance: HYDROMORPHONE
     Dosage: CAPSULE, SUSTAINED RELEASE
  7. LASIX [Concomitant]
     Active Substance: FUROSEMIDE
  8. LIPITOR [Concomitant]
     Active Substance: ATORVASTATIN CALCIUM
  9. NEURONTIN [Concomitant]
     Active Substance: GABAPENTIN
  10. SENOKOT [Concomitant]
     Active Substance: SENNOSIDES
  11. SYNTHROID [Concomitant]
     Active Substance: LEVOTHYROXINE SODIUM

REACTIONS (1)
  - Haematuria [Fatal]
